FAERS Safety Report 7208250-6 (Version None)
Quarter: 2010Q4

REPORT INFORMATION
  Report Type: 
  Country: None (occurrence: None)
  Receive Date: 20101126
  Receipt Date: 20100818
  Transmission Date: 20110411
  Serious: Yes (Other)
  Sender: FDA-Public Use
  Company Number: 312363

PATIENT
  Age: 41 Year
  Sex: Male
  Weight: 72.6 kg

DRUGS (2)
  1. VICTOZA [Suspect]
     Indication: TYPE 2 DIABETES MELLITUS
     Dosage: 1.8 MG, QD, SUBCUTANEOUS
     Route: 058
     Dates: start: 20100401, end: 20100726
  2. METFORMIN (METFORMIN) [Concomitant]

REACTIONS (3)
  - DIARRHOEA [None]
  - PANCREATITIS [None]
  - WEIGHT DECREASED [None]
